FAERS Safety Report 22036009 (Version 2)
Quarter: 2023Q1

REPORT INFORMATION
  Report Type: Spontaneous
  Country: JP (occurrence: JP)
  Receive Date: 20230224
  Receipt Date: 20230330
  Transmission Date: 20230418
  Serious: Yes (Hospitalization)
  Sender: FDA-Public Use
  Company Number: JP-Eisai-202214735_LEN-HCC_P_1

PATIENT
  Sex: Female

DRUGS (2)
  1. LENVIMA [Suspect]
     Active Substance: LENVATINIB
     Indication: Hepatocellular carcinoma
     Route: 048
     Dates: start: 20230112, end: 2023
  2. LENVIMA [Suspect]
     Active Substance: LENVATINIB
     Dosage: DOSE AND FREQUENCY UNKNOWN (DOSE REDUCED)
     Route: 048
     Dates: start: 2023

REACTIONS (2)
  - Platelet count decreased [Recovered/Resolved]
  - Decreased appetite [Recovering/Resolving]

NARRATIVE: CASE EVENT DATE: 20230101
